FAERS Safety Report 5320509-6 (Version None)
Quarter: 2007Q2

REPORT INFORMATION
  Report Type: 
  Country: None (occurrence: None)
  Receive Date: 20070502
  Receipt Date: 20070424
  Transmission Date: 20071010
  Serious: Yes (Hospitalization)
  Sender: FDA-Public Use
  Company Number: 163-21880-07041260

PATIENT
  Age: 21 Year
  Sex: Male
  Weight: 67 kg

DRUGS (2)
  1. REVLIMID [Suspect]
     Indication: EPENDYMOMA
     Dosage: SEE IMAGE
     Route: 048
     Dates: start: 20061010, end: 20070421
  2. REVLIMID [Suspect]
     Indication: EPENDYMOMA
     Dosage: SEE IMAGE
     Route: 048
     Dates: start: 20060517

REACTIONS (7)
  - CELLULITIS [None]
  - DIARRHOEA [None]
  - LEUKOCYTOSIS [None]
  - MYOSITIS [None]
  - NEUTROPENIA [None]
  - PLATELET COUNT DECREASED [None]
  - PYREXIA [None]
